FAERS Safety Report 18489037 (Version 1)
Quarter: 2020Q4

REPORT INFORMATION
  Report Type: Report from Study
  Country: None (occurrence: US)
  Receive Date: 20201110
  Receipt Date: 20201110
  Transmission Date: 20210114
  Serious: Yes (Other)
  Sender: FDA-Public Use
  Company Number: US-ABBVIE-20K-163-3643096-00

PATIENT
  Age: 77 Year
  Sex: Male

DRUGS (3)
  1. VENCLEXTA [Suspect]
     Active Substance: VENETOCLAX
     Dosage: FOR 7 DAYS
     Route: 048
     Dates: start: 20201101
  2. VENCLEXTA [Suspect]
     Active Substance: VENETOCLAX
     Dosage: FOR 7 DAYS
     Route: 048
     Dates: start: 20201024, end: 20201031
  3. VENCLEXTA [Suspect]
     Active Substance: VENETOCLAX
     Indication: CHRONIC LYMPHOCYTIC LEUKAEMIA
     Dosage: FOR 7 DAYS
     Route: 048
     Dates: start: 20201016, end: 20201023

REACTIONS (1)
  - Blood count abnormal [Unknown]

NARRATIVE: CASE EVENT DATE: 20201104
